FAERS Safety Report 7774929-0 (Version None)
Quarter: 2011Q3

REPORT INFORMATION
  Report Type: 
  Country: None (occurrence: None)
  Receive Date: 20110921
  Receipt Date: 20110906
  Transmission Date: 20111222
  Serious: Yes (Other)
  Sender: FDA-Public Use
  Company Number: FK201101893

PATIENT
  Age: 20 Year
  Sex: Male

DRUGS (4)
  1. VINBLASTINE SULFATE INJECTION (VINBLASTINE SULFATE) (VINBLASTINE SULFA [Concomitant]
  2. DOXORUBICIN HCL [Concomitant]
  3. BLEOMYCIN SULFATE [Suspect]
     Indication: HODGKIN'S DISEASE
  4. DACARBAZINE [Concomitant]

REACTIONS (3)
  - DERMATOSIS [None]
  - URTICARIA [None]
  - RASH PRURITIC [None]
